FAERS Safety Report 10313326 (Version 1)
Quarter: 2014Q3

REPORT INFORMATION
  Report Type: Spontaneous
  Country: US (occurrence: US)
  Receive Date: 20140718
  Receipt Date: 20140718
  Transmission Date: 20150326
  Serious: No
  Sender: FDA-Public Use
  Company Number: US-AMGEN INC.-USASP2014052866

PATIENT
  Age: 68 Year
  Sex: Female

DRUGS (2)
  1. ENBREL [Suspect]
     Active Substance: ETANERCEPT
     Indication: RHEUMATOID ARTHRITIS
     Dosage: 25 MG WEEKLY
     Route: 065
     Dates: start: 20000101
  2. PROTONIX [Suspect]
     Active Substance: PANTOPRAZOLE SODIUM
     Indication: PRODUCT USED FOR UNKNOWN INDICATION
     Dosage: UNK
     Route: 065
     Dates: end: 20140705

REACTIONS (9)
  - Gait disturbance [Recovering/Resolving]
  - Muscular weakness [Recovering/Resolving]
  - Dizziness [Recovering/Resolving]
  - Balance disorder [Recovering/Resolving]
  - Dyspnoea [Recovering/Resolving]
  - Limb discomfort [Recovering/Resolving]
  - Influenza like illness [Recovered/Resolved]
  - Pain [Recovered/Resolved]
  - Musculoskeletal stiffness [Recovered/Resolved]

NARRATIVE: CASE EVENT DATE: 201405
